FAERS Safety Report 9190098 (Version 1)
Quarter: 2013Q1

REPORT INFORMATION
  Report Type: Spontaneous
  Country: GB (occurrence: None)
  Receive Date: 20130322
  Receipt Date: 20130322
  Transmission Date: 20140127
  Serious: Yes (Other)
  Sender: FDA-Public Use
  Company Number: E2B_00000645

PATIENT
  Age: 64 Year
  Sex: Male
  Weight: 82 kg

DRUGS (1)
  1. LEVETIRACETAM [Suspect]
     Indication: EPILEPSY
     Dosage: 1000 MG (500 MG, 2 IN 1 D), UNKNOWN
     Dates: start: 20121216, end: 20130208

REACTIONS (5)
  - Headache [None]
  - Dizziness [None]
  - Confusional state [None]
  - Gait disturbance [None]
  - Slow response to stimuli [None]
